FAERS Safety Report 8121308-2 (Version None)
Quarter: 2012Q1

REPORT INFORMATION
  Report Type: 
  Country: None (occurrence: None)
  Receive Date: 20120208
  Receipt Date: 20120131
  Transmission Date: 20120608
  Serious: Yes (Hospitalization)
  Sender: FDA-Public Use
  Company Number: DE-BAYER-200810461GPV

PATIENT
  Age: 36 Year
  Sex: Female
  Weight: 56 kg

DRUGS (2)
  1. DROSPIRENONE AND ETHINYL ESTRADIOL [Suspect]
     Indication: ORAL CONTRACEPTION
     Dosage: 1 DF, QD
     Route: 048
     Dates: start: 20070517, end: 20070521
  2. UNACID PD [Concomitant]
     Indication: BRONCHITIS
     Dosage: 375 MG, QD
     Route: 048
     Dates: start: 20060401, end: 20060410

REACTIONS (1)
  - AUTOIMMUNE THROMBOCYTOPENIA [None]
